FAERS Safety Report 8343388-1 (Version None)
Quarter: 2012Q1

REPORT INFORMATION
  Report Type: 
  Country: None (occurrence: None)
  Receive Date: 20120330
  Receipt Date: 20111209
  Transmission Date: 20120608
  Serious: Yes (Other)
  Sender: FDA-Public Use
  Company Number: PHEH2011US011447

PATIENT
  Age: 84 Year
  Sex: Female

DRUGS (10)
  1. EXELON [Suspect]
     Dosage: 9.5 MG, QD, TRANSDERMAL
     Route: 062
  2. ZONISAMIDE [Concomitant]
  3. DILGIAZEMER [Concomitant]
  4. PREVACID [Concomitant]
  5. DIGOXIN [Concomitant]
  6. OS-CAL D (CALCIUM CARBONATE, COLECALCIFEROL) [Concomitant]
  7. TRAZODONE HCL [Concomitant]
  8. CARVEDILOL [Concomitant]
  9. RAMADEAN [Concomitant]
  10. LEVOTHYROXINE SODIUM [Concomitant]

REACTIONS (5)
  - HIP FRACTURE [None]
  - FEELING ABNORMAL [None]
  - DIARRHOEA [None]
  - FATIGUE [None]
  - DIZZINESS [None]
